FAERS Safety Report 11947910 (Version 1)
Quarter: 2016Q1

REPORT INFORMATION
  Report Type: Report from Study
  Country: US (occurrence: US)
  Receive Date: 20160125
  Receipt Date: 20160125
  Transmission Date: 20160526
  Serious: Yes (Other)
  Sender: FDA-Public Use
  Company Number: US-GILEAD-2016-0193709

PATIENT
  Age: 72 Year
  Sex: Male

DRUGS (1)
  1. IDELALISIB [Suspect]
     Active Substance: IDELALISIB
     Indication: B-CELL LYMPHOMA
     Dosage: 150 MG, BID
     Route: 048
     Dates: start: 20150731, end: 20160114

REACTIONS (7)
  - Dysphagia [Unknown]
  - Urinary retention [Unknown]
  - Pyrexia [Unknown]
  - Weight decreased [Unknown]
  - Eating disorder [Unknown]
  - Chills [Unknown]
  - Decreased appetite [Unknown]

NARRATIVE: CASE EVENT DATE: 201601
